FAERS Safety Report 10559774 (Version 1)
Quarter: 2014Q4

REPORT INFORMATION
  Report Type: Spontaneous
  Country: US (occurrence: US)
  Receive Date: 20141103
  Receipt Date: 20141103
  Transmission Date: 20150529
  Serious: No
  Sender: FDA-Public Use
  Company Number: US-PFIZER INC-2014301547

PATIENT
  Age: 66 Year
  Sex: Male

DRUGS (1)
  1. SUTENT [Suspect]
     Active Substance: SUNITINIB MALATE
     Indication: MALIGNANT URINARY TRACT NEOPLASM
     Dosage: 50 MG, CYCLIC DAILY
     Route: 048
     Dates: start: 20140121

REACTIONS (3)
  - Diarrhoea [Unknown]
  - Acne [Unknown]
  - Ageusia [Unknown]

NARRATIVE: CASE EVENT DATE: 20141030
